FAERS Safety Report 24175231 (Version 1)
Quarter: 2024Q3

REPORT INFORMATION
  Report Type: Report from Study
  Country: US (occurrence: None)
  Receive Date: 20240805
  Receipt Date: 20240805
  Transmission Date: 20241016
  Serious: Yes (Hospitalization)
  Sender: ASTRAZENECA
  Company Number: 2023A180809

PATIENT
  Sex: Male
  Weight: 71.7 kg

DRUGS (11)
  1. CALQUENCE [Suspect]
     Active Substance: ACALABRUTINIB
     Indication: Mantle cell lymphoma
     Route: 048
     Dates: start: 202306
  2. FUROSEMIDE [Concomitant]
     Active Substance: FUROSEMIDE
  3. XARELTO [Concomitant]
     Active Substance: RIVAROXABAN
  4. EZETIMIBE [Concomitant]
     Active Substance: EZETIMIBE
  5. ACYCLOVIR [Concomitant]
     Active Substance: ACYCLOVIR
  6. METOPROLOL [Concomitant]
     Active Substance: METOPROLOL
  7. FENOFIBRATE [Concomitant]
     Active Substance: FENOFIBRATE
  8. ATORVASTATIN [Concomitant]
     Active Substance: ATORVASTATIN
  9. PANTOPRAZOLE [Concomitant]
     Active Substance: PANTOPRAZOLE
  10. CYCLOBENZAPRINE [Concomitant]
     Active Substance: CYCLOBENZAPRINE
  11. ONDANSETRON [Concomitant]
     Active Substance: ONDANSETRON

REACTIONS (1)
  - Haematological infection [Recovering/Resolving]
